FAERS Safety Report 22304099 (Version 1)
Quarter: 2023Q2

REPORT INFORMATION
  Report Type: Spontaneous
  Country: GB (occurrence: GB)
  Receive Date: 20230510
  Receipt Date: 20230510
  Transmission Date: 20230722
  Serious: Yes (Life-Threatening, Hospitalization, Disabling, Other)
  Sender: FDA-Public Use
  Company Number: None

PATIENT
  Sex: Female
  Weight: 83 kg

DRUGS (2)
  1. EPIRUBICIN HYDROCHLORIDE [Suspect]
     Active Substance: EPIRUBICIN HYDROCHLORIDE
     Indication: Breast cancer female
     Dosage: 160MG BOLUS INFUSION EVERY 21 DAYS
     Dates: start: 20180712, end: 20181025
  2. CYCLOPHOSPHAMIDE [Suspect]
     Active Substance: CYCLOPHOSPHAMIDE
     Indication: Breast cancer female
     Dosage: 1100MG BOLUS INFUSION EVERY 21 DAYS
     Dates: start: 20180712, end: 20181025

REACTIONS (2)
  - Cardiotoxicity [Recovered/Resolved with Sequelae]
  - Cardiac failure congestive [Unknown]
